FAERS Safety Report 4560134-8 (Version None)
Quarter: 2005Q1

REPORT INFORMATION
  Report Type: 
  Country: None (occurrence: None)
  Receive Date: 20050119
  Receipt Date: 20041229
  Transmission Date: 20050727
  Serious: Yes (Hospitalization)
  Sender: FDA-Public Use
  Company Number: WAES 0412BEL00054

PATIENT
  Age: 9 Day
  Sex: Male

DRUGS (10)
  1. INDOCIN I.V. [Suspect]
     Indication: PATENT DUCTUS ARTERIOSUS REPAIR
     Dosage: 0.2 MG/KG/DAILY IV
     Route: 042
  2. DEXAMETHASONE [Suspect]
     Indication: PROPHYLAXIS
     Dosage: SEE IMAGE IV
     Route: 042
  3. DEXAMETHASONE [Suspect]
     Indication: PROPHYLAXIS
     Dosage: SEE IMAGE IV
     Route: 042
  4. DEXAMETHASONE [Suspect]
     Indication: PROPHYLAXIS
     Dosage: SEE IMAGE IV
     Route: 042
  5. DEXAMETHASONE [Suspect]
     Indication: PROPHYLAXIS
     Dosage: SEE IMAGE IV
     Route: 042
  6. AMPICILLIN [Concomitant]
  7. BERACTANT [Concomitant]
  8. CEFOTAXIME SODIUM [Concomitant]
  9. INSULIN [Concomitant]
  10. RANITIDINE [Concomitant]

REACTIONS (4)
  - GASTROINTESTINAL NECROSIS [None]
  - HYPERGLYCAEMIA [None]
  - INTESTINAL ISCHAEMIA [None]
  - INTESTINAL PERFORATION [None]
